FAERS Safety Report 7117550-X (Version None)
Quarter: 2010Q4

REPORT INFORMATION
  Report Type: 
  Country: None (occurrence: None)
  Receive Date: 20101122
  Receipt Date: 20101112
  Transmission Date: 20110411
  Serious: Yes (Hospitalization)
  Sender: FDA-Public Use
  Company Number: HU-ABBOTT-10P-076-0685062-00

PATIENT
  Sex: Female
  Weight: 80 kg

DRUGS (7)
  1. LIPIDIL [Suspect]
     Indication: HYPERLIPIDAEMIA
     Dates: start: 20100329, end: 20101028
  2. ATORIS [Suspect]
     Indication: HYPERLIPIDAEMIA
     Route: 048
  3. AMARYL [Concomitant]
     Indication: TYPE 2 DIABETES MELLITUS
     Route: 048
  4. MEFORAL [Concomitant]
     Indication: DIABETES MELLITUS
     Route: 048
  5. EXFORGE [Concomitant]
     Indication: HYPERTENSION
     Dosage: 10/160MG ONCE A DAY
     Route: 048
  6. NEBIVOLOL HCL [Concomitant]
     Indication: HYPERTENSION
     Route: 048
  7. CONTROLOC [Concomitant]
     Indication: PRODUCT USED FOR UNKNOWN INDICATION
     Route: 048

REACTIONS (6)
  - ALANINE AMINOTRANSFERASE INCREASED [None]
  - ASPARTATE AMINOTRANSFERASE INCREASED [None]
  - BLOOD BILIRUBIN INCREASED [None]
  - GAMMA-GLUTAMYLTRANSFERASE INCREASED [None]
  - HEPATOTOXICITY [None]
  - LIVER DISORDER [None]
